FAERS Safety Report 8082678-7 (Version None)
Quarter: 2012Q1

REPORT INFORMATION
  Report Type: 
  Country: None (occurrence: None)
  Receive Date: 20120127
  Receipt Date: 20110224
  Transmission Date: 20120608
  Serious: No
  Sender: FDA-Public Use
  Company Number: US-ABBOTT-11P-163-0707555-00

PATIENT
  Age: 52 Year
  Sex: Female

DRUGS (5)
  1. VITAMIN TAB [Concomitant]
     Indication: VITAMIN SUPPLEMENTATION
  2. HUMIRA [Suspect]
     Indication: CROHN'S DISEASE
     Dates: start: 20101102
  3. AMBIEN [Concomitant]
     Indication: PRODUCT USED FOR UNKNOWN INDICATION
     Dosage: AT BEDTIME
  4. BENADRYL [Concomitant]
     Indication: PRODUCT USED FOR UNKNOWN INDICATION
  5. OMEPRAZOLE [Concomitant]
     Indication: PRODUCT USED FOR UNKNOWN INDICATION

REACTIONS (1)
  - NAUSEA [None]
